FAERS Safety Report 8365766-7 (Version None)
Quarter: 2012Q2

REPORT INFORMATION
  Report Type: 
  Country: None (occurrence: None)
  Receive Date: 20120517
  Receipt Date: 20120504
  Transmission Date: 20120825
  Serious: Yes (Other)
  Sender: FDA-Public Use
  Company Number: DK-AMGEN-DNKCT2012014194

PATIENT
  Age: 74 Year
  Sex: Female

DRUGS (8)
  1. METOPROLOL SUCCINATE [Concomitant]
     Dosage: 50 MG, 1X/DAY
     Route: 048
  2. OMEPRAZOLE [Concomitant]
     Dosage: 20 MG, 1X/DAY
     Route: 048
  3. HJERTEMAGNYL                       /01043701/ [Concomitant]
     Dosage: 75 MG, 1X/DAY
     Route: 048
  4. VAGIFEM [Concomitant]
     Dosage: 3 PER WEEK
     Route: 067
  5. ETANERCEPT [Suspect]
     Indication: RHEUMATOID ARTHRITIS
     Dosage: 50 MG, WEEKLY
     Dates: start: 20111026
  6. SPIRIVA [Concomitant]
     Dosage: 18 UG, 1X/DAY
     Route: 055
  7. ISODUR [Concomitant]
     Dosage: 40 MG, 1X/DAY
     Route: 048
  8. UNIKALK SENIOR [Concomitant]
     Dosage: 25 UG, 1X/DAY

REACTIONS (2)
  - POST HERPETIC NEURALGIA [None]
  - HERPES ZOSTER [None]
